FAERS Safety Report 9774843 (Version 3)
Quarter: 2014Q1

REPORT INFORMATION
  Report Type: Report from Study
  Country: US (occurrence: US)
  Receive Date: 20131220
  Receipt Date: 20140210
  Transmission Date: 20141002
  Serious: Yes (Other)
  Sender: FDA-Public Use
  Company Number: US-US-EMD SERONO, INC.-7240033

PATIENT
  Age: 33 Year
  Sex: Female

DRUGS (2)
  1. REBIF [Suspect]
     Indication: MULTIPLE SCLEROSIS
  2. REBIF [Suspect]
     Route: 058
     Dates: start: 20130206

REACTIONS (7)
  - Intervertebral disc protrusion [Unknown]
  - Spinal osteoarthritis [Unknown]
  - Intervertebral disc protrusion [Unknown]
  - Central nervous system lesion [Unknown]
  - Urinary retention [Recovering/Resolving]
  - Hypoaesthesia [Not Recovered/Not Resolved]
  - Influenza like illness [Not Recovered/Not Resolved]
